FAERS Safety Report 6052687-8 (Version None)
Quarter: 2009Q1

REPORT INFORMATION
  Report Type: 
  Country: None (occurrence: None)
  Receive Date: 20090127
  Receipt Date: 20090119
  Transmission Date: 20090719
  Serious: Yes (Hospitalization, Other)
  Sender: FDA-Public Use
  Company Number: FR-BAXTER-2009BH001032

PATIENT
  Age: 39 Year
  Sex: Male

DRUGS (3)
  1. ENDOXAN BAXTER [Suspect]
     Indication: LYMPHOMA
     Route: 065
     Dates: end: 20080201
  2. MABTHERA [Suspect]
     Indication: LYMPHOMA
     Route: 065
     Dates: end: 20080201
  3. FLUDARA [Suspect]
     Indication: LYMPHOMA
     Route: 065
     Dates: end: 20080201

REACTIONS (6)
  - BONE MARROW FAILURE [None]
  - DIARRHOEA [None]
  - GENERAL PHYSICAL CONDITION ABNORMAL [None]
  - PLEURAL HAEMORRHAGE [None]
  - PYREXIA [None]
  - VARICELLA [None]
